FAERS Safety Report 9188148 (Version 1)
Quarter: 2013Q1

REPORT INFORMATION
  Report Type: Report from Study
  Country: ES (occurrence: ES)
  Receive Date: 20130325
  Receipt Date: 20130325
  Transmission Date: 20140127
  Serious: Yes (Other)
  Sender: FDA-Public Use
  Company Number: ES-ROCHE-1205666

PATIENT
  Age: 47 Year
  Sex: Female

DRUGS (1)
  1. VALIUM [Suspect]
     Indication: SCHIZOPHRENIA
     Route: 065

REACTIONS (1)
  - Schizophrenia [Unknown]
